FAERS Safety Report 5740627-8 (Version None)
Quarter: 2008Q2

REPORT INFORMATION
  Report Type: 
  Country: None (occurrence: None)
  Receive Date: 20080516
  Receipt Date: 20080514
  Transmission Date: 20081010
  Serious: Yes (Hospitalization)
  Sender: FDA-Public Use
  Company Number: B0515804A

PATIENT
  Age: 83 Year
  Sex: Female

DRUGS (11)
  1. VALTREX [Suspect]
     Indication: HERPES ZOSTER
     Dosage: 1000MG THREE TIMES PER DAY
     Route: 048
     Dates: start: 20080306, end: 20080306
  2. ALDACTONE [Concomitant]
     Dosage: 25MG PER DAY
     Route: 048
     Dates: end: 20080329
  3. FUROSEMIDE [Concomitant]
     Dosage: 20MG PER DAY
     Route: 048
     Dates: end: 20080306
  4. AMARYL [Concomitant]
     Dosage: 1MG PER DAY
     Route: 048
     Dates: end: 20080306
  5. BLOPRESS [Concomitant]
     Dosage: 8MG PER DAY
     Route: 048
     Dates: end: 20080329
  6. NORVASC [Concomitant]
     Dosage: 5MG PER DAY
     Route: 048
     Dates: end: 20080306
  7. ARICEPT [Concomitant]
     Dosage: 5MG PER DAY
     Route: 048
     Dates: end: 20080306
  8. LIPITOR [Concomitant]
     Dosage: 10MG PER DAY
     Route: 048
     Dates: end: 20080306
  9. ACTOS [Concomitant]
     Dosage: 15MG PER DAY
     Route: 048
     Dates: end: 20080331
  10. LEVOFLOXACIN [Concomitant]
     Dosage: 300MG PER DAY
     Route: 048
     Dates: start: 20080306, end: 20080306
  11. CALONAL [Concomitant]
     Dosage: 400MG PER DAY
     Route: 048
     Dates: start: 20080306, end: 20080306

REACTIONS (5)
  - ALTERED STATE OF CONSCIOUSNESS [None]
  - CONVULSION [None]
  - CSF CELL COUNT INCREASED [None]
  - RENAL FAILURE ACUTE [None]
  - TOXIC ENCEPHALOPATHY [None]
